FAERS Safety Report 11749216 (Version 1)
Quarter: 2015Q4

REPORT INFORMATION
  Report Type: Spontaneous
  Country: US (occurrence: None)
  Receive Date: 20151116
  Receipt Date: 20151116
  Transmission Date: 20160304
  Serious: Yes (Hospitalization)
  Sender: FDA-Public Use
  Company Number: None

PATIENT
  Sex: Male

DRUGS (1)
  1. ENOXAPARIN 60 MG/0.6 ML TEVA [Suspect]
     Active Substance: ENOXAPARIN
     Route: 058

REACTIONS (2)
  - Therapy cessation [None]
  - Pulmonary embolism [None]
